FAERS Safety Report 14151935 (Version 3)
Quarter: 2017Q4

REPORT INFORMATION
  Report Type: Spontaneous
  Country: JP (occurrence: JP)
  Receive Date: 20171102
  Receipt Date: 20171122
  Transmission Date: 20180321
  Serious: Yes (Other)
  Sender: FDA-Public Use
  Company Number: JP-009507513-1710JPN003329J

PATIENT
  Age: 75 Year
  Sex: Male

DRUGS (1)
  1. DESALEX TABLETS 5MG [Suspect]
     Active Substance: DESLORATADINE
     Dosage: 5 MG, QD
     Route: 048

REACTIONS (1)
  - Arrhythmia [Unknown]
